FAERS Safety Report 11362182 (Version 4)
Quarter: 2015Q3

REPORT INFORMATION
  Report Type: Report from Study
  Country: AU (occurrence: AU)
  Receive Date: 20150810
  Receipt Date: 20150817
  Transmission Date: 20151125
  Serious: Yes (Hospitalization, Other)
  Sender: FDA-Public Use
  Company Number: AU-ABBVIE-15P-008-1441998-00

PATIENT
  Age: 66 Year
  Sex: Male

DRUGS (3)
  1. DUODOPA [Suspect]
     Active Substance: CARBIDOPA\LEVODOPA
     Indication: PARKINSON^S DISEASE
     Dosage: CR: 4.3ML/HR, MD: 10ML;  16 HOURS A DAY
     Route: 050
     Dates: start: 20150629, end: 20150802
  2. DUODOPA [Suspect]
     Active Substance: CARBIDOPA\LEVODOPA
     Dosage: CR: 4.5ML/HR, MD 13ML
     Route: 050
     Dates: start: 20150803
  3. DUODOPA [Suspect]
     Active Substance: CARBIDOPA\LEVODOPA
     Dosage: MD: 14ML/HR,CR: 4.9ML/HR.ED: 4ML/HR
     Route: 050

REACTIONS (2)
  - Tremor [Unknown]
  - On and off phenomenon [Unknown]

NARRATIVE: CASE EVENT DATE: 20150724
